FAERS Safety Report 15067141 (Version 1)
Quarter: 2018Q2

REPORT INFORMATION
  Report Type: Spontaneous
  Country: FR (occurrence: FR)
  Receive Date: 20180626
  Receipt Date: 20180626
  Transmission Date: 20180711
  Serious: Yes (Other)
  Sender: FDA-Public Use
  Company Number: FR-PFIZER INC-2018206726

PATIENT
  Age: 70 Year
  Sex: Male

DRUGS (4)
  1. SUTENT [Suspect]
     Active Substance: SUNITINIB MALATE
     Dosage: 50 MG, CYCLIC (DAILY, 2 WEEKS ON, 1 WEEK OFF)
     Dates: start: 20180619
  2. EXFORGE [Concomitant]
     Active Substance: AMLODIPINE BESYLATE\VALSARTAN
     Dosage: UNK
     Dates: start: 201712
  3. SUTENT [Suspect]
     Active Substance: SUNITINIB MALATE
     Indication: METASTATIC RENAL CELL CARCINOMA
     Dosage: 50 MG, CYCLIC, (DAILY, 4 WEEKS ON/ 2 WEEKS OFF )
     Dates: start: 201711
  4. TAHOR [Concomitant]
     Active Substance: ATORVASTATIN CALCIUM
     Dosage: UNK
     Dates: start: 2015

REACTIONS (15)
  - Dysphagia [Unknown]
  - Limb injury [Recovering/Resolving]
  - Haemoglobin decreased [Not Recovered/Not Resolved]
  - Platelet count abnormal [Recovered/Resolved]
  - Mucous membrane disorder [Recovering/Resolving]
  - Blood pressure increased [Not Recovered/Not Resolved]
  - Swelling [Unknown]
  - Herpes virus infection [Unknown]
  - Renal pain [Unknown]
  - Blood thyroid stimulating hormone increased [Recovered/Resolved]
  - Mouth ulceration [Unknown]
  - Rash [Unknown]
  - Eye irritation [Unknown]
  - Weight decreased [Not Recovered/Not Resolved]
  - Fatigue [Not Recovered/Not Resolved]

NARRATIVE: CASE EVENT DATE: 20171210
